FAERS Safety Report 14256591 (Version 2)
Quarter: 2017Q4

REPORT INFORMATION
  Report Type: Spontaneous
  Country: GB (occurrence: GB)
  Receive Date: 20171206
  Receipt Date: 20171215
  Transmission Date: 20180321
  Serious: Yes (Death)
  Sender: FDA-Public Use
  Company Number: GB-PFIZER INC-2017521926

PATIENT
  Age: 53 Year
  Sex: Male

DRUGS (1)
  1. REFACTO AF [Suspect]
     Active Substance: ANTIHEMOPHILIC FACTOR, HUMAN RECOMBINANT RESIDUES 743-1636 DELETED
     Dosage: 1000 IU, MONTHLY

REACTIONS (1)
  - Death [Fatal]
